FAERS Safety Report 22110470 (Version 1)
Quarter: 2023Q1

REPORT INFORMATION
  Report Type: Spontaneous
  Country: US (occurrence: US)
  Receive Date: 20230317
  Receipt Date: 20230317
  Transmission Date: 20230418
  Serious: No
  Sender: FDA-Public Use
  Company Number: US-GLENMARK PHARMACEUTICALS-2023GMK078510

PATIENT

DRUGS (2)
  1. IMIQUIMOD [Suspect]
     Active Substance: IMIQUIMOD
     Indication: Actinic keratosis
     Dosage: UNK, THREE TIMES A WEEK FOR FOUR WEEKS
     Route: 061
     Dates: start: 20230116
  2. PREDNISONE [Concomitant]
     Active Substance: PREDNISONE
     Indication: Interstitial lung disease
     Dosage: 10 MILLIGRAM, QD
     Route: 048

REACTIONS (3)
  - Product use issue [Unknown]
  - Dizziness [Unknown]
  - Influenza like illness [Unknown]

NARRATIVE: CASE EVENT DATE: 20230101
